FAERS Safety Report 6656505-6 (Version None)
Quarter: 2010Q1

REPORT INFORMATION
  Report Type: 
  Country: None (occurrence: None)
  Receive Date: 20100324
  Receipt Date: 20100319
  Transmission Date: 20100710
  Serious: Yes (Hospitalization)
  Sender: FDA-Public Use
  Company Number: ALL1-2010-01571

PATIENT
  Age: 49 Year
  Sex: Male

DRUGS (1)
  1. FOSRENOL [Suspect]
     Indication: HYPERPHOSPHATAEMIA
     Dosage: 2000 MG WITH MEALS + 1000MG WITH SNACKS, ORAL
     Route: 048

REACTIONS (4)
  - BACK DISORDER [None]
  - NAUSEA [None]
  - SYNCOPE [None]
  - VOMITING [None]
